FAERS Safety Report 25850429 (Version 1)
Quarter: 2025Q3

REPORT INFORMATION
  Report Type: Spontaneous
  Country: CN (occurrence: CN)
  Receive Date: 20250926
  Receipt Date: 20250926
  Transmission Date: 20251021
  Serious: Yes (Other)
  Sender: STRIDES
  Company Number: CN-STRIDES ARCOLAB LIMITED-2025SP012080

PATIENT

DRUGS (4)
  1. TACROLIMUS [Interacting]
     Active Substance: TACROLIMUS
     Indication: Immunosuppressant drug therapy
     Route: 065
  2. PREDNISOLONE [Suspect]
     Active Substance: PREDNISOLONE
     Indication: Immunosuppressant drug therapy
     Route: 065
  3. MYCOPHENOLATE MOFETIL [Suspect]
     Active Substance: MYCOPHENOLATE MOFETIL
     Indication: Immunosuppressant drug therapy
     Route: 065
  4. TIGECYCLINE [Interacting]
     Active Substance: TIGECYCLINE
     Indication: Bacterial infection
     Route: 065

REACTIONS (4)
  - Pancreatitis acute [Recovered/Resolved]
  - Drug interaction [Recovered/Resolved]
  - Bacterial infection [Unknown]
  - Off label use [Unknown]
